FAERS Safety Report 22645863 (Version 2)
Quarter: 2024Q1

REPORT INFORMATION
  Report Type: Report from Study
  Country: US (occurrence: US)
  Receive Date: 20230627
  Receipt Date: 20240102
  Transmission Date: 20240410
  Serious: Yes (Hospitalization, Other)
  Sender: FDA-Public Use
  Company Number: US-BRISTOL-MYERS SQUIBB COMPANY-2023-089804

PATIENT
  Age: 63 Year
  Sex: Male
  Weight: 81.65 kg

DRUGS (3)
  1. ELIQUIS [Suspect]
     Active Substance: APIXABAN
     Indication: Cerebrovascular accident prophylaxis
     Route: 048
     Dates: start: 2022, end: 202304
  2. ELIQUIS [Suspect]
     Active Substance: APIXABAN
     Route: 048
     Dates: start: 202305
  3. METOPROLOL [Concomitant]
     Active Substance: METOPROLOL
     Indication: Product used for unknown indication

REACTIONS (9)
  - Rash [Unknown]
  - Mitral valve incompetence [Unknown]
  - Tinea pedis [Unknown]
  - Internal haemorrhage [Unknown]
  - Blood urine present [Unknown]
  - Tooth disorder [Unknown]
  - Brain fog [Not Recovered/Not Resolved]
  - Nephrolithiasis [Unknown]
  - Vision blurred [Unknown]

NARRATIVE: CASE EVENT DATE: 20230101
